FAERS Safety Report 4651742-4 (Version None)
Quarter: 2005Q2

REPORT INFORMATION
  Report Type: 
  Country: None (occurrence: None)
  Receive Date: 20050404
  Receipt Date: 20041230
  Transmission Date: 20051028
  Serious: No
  Sender: FDA-Public Use
  Company Number: USA050187255

PATIENT
  Sex: Female

DRUGS (6)
  1. CYMBALTA [Suspect]
     Indication: NEUROPATHIC PAIN
     Dosage: 30 MG  DAY
     Dates: start: 20041227, end: 20041227
  2. OXYCONTIN [Concomitant]
  3. NORVASC [Concomitant]
  4. TENORMIN (ATENOLOL EG) [Concomitant]
  5. CELEBREX [Concomitant]
  6. XANAX (ALPRAZOLAM DUM) [Concomitant]

REACTIONS (2)
  - BURNING SENSATION [None]
  - DIARRHOEA [None]
